FAERS Safety Report 5030652-7 (Version None)
Quarter: 2006Q2

REPORT INFORMATION
  Report Type: 
  Country: None (occurrence: None)
  Receive Date: 20060615
  Receipt Date: 20060608
  Transmission Date: 20061013
  Serious: Yes (Death)
  Sender: FDA-Public Use
  Company Number: 2006-143634-NL

PATIENT
  Age: 78 Year
  Sex: Male

DRUGS (11)
  1. DANAPAROID SODIUM [Suspect]
     Indication: DISSEMINATED INTRAVASCULAR COAGULATION
     Dosage: INTRAVENOUS (NOS)
     Route: 042
     Dates: start: 20051228, end: 20060103
  2. DANAPAROID SODIUM [Suspect]
     Indication: DISSEMINATED INTRAVASCULAR COAGULATION
     Dosage: INTRAVENOUS (NOS)
     Route: 042
     Dates: start: 20060105, end: 20060114
  3. CEFOZOPRAN HYDROCHLORIDE [Concomitant]
  4. VANCOMYCIN [Concomitant]
  5. BIAPENEM [Concomitant]
  6. TEICOPLANIN [Concomitant]
  7. MICAFUNGIN SODIUM [Concomitant]
  8. PREDNISOLONE ACETATE [Concomitant]
  9. PROPOFOL [Concomitant]
  10. SULPERAZON [Concomitant]
  11. ALBUMIN (HUMAN) [Concomitant]

REACTIONS (7)
  - DEHYDRATION [None]
  - HYPERKALAEMIA [None]
  - HYPOALBUMINAEMIA [None]
  - HYPOCHOLESTEROLAEMIA [None]
  - LEUKOCYTOSIS [None]
  - LIVER DISORDER [None]
  - RENAL FAILURE [None]
